FAERS Safety Report 14293617 (Version 1)
Quarter: 2017Q4

REPORT INFORMATION
  Report Type: Spontaneous
  Country: US (occurrence: US)
  Receive Date: 20171216
  Receipt Date: 20171216
  Transmission Date: 20180321
  Serious: Yes (Life-Threatening, Hospitalization, Other)
  Sender: FDA-Public Use
  Company Number: US-SUN PHARMACEUTICAL INDUSTRIES LTD-2017US-157025

PATIENT
  Age: 17 Year
  Sex: Female

DRUGS (6)
  1. FLUTICASONE. [Suspect]
     Active Substance: FLUTICASONE
     Indication: ANAPHYLAXIS PROPHYLAXIS
     Route: 045
  2. ADRENALINE [Suspect]
     Active Substance: EPINEPHRINE
     Indication: ANAPHYLACTIC REACTION
     Dosage: UNK UNK, PRN
     Route: 030
  3. DIPHENHYDRAMINE. [Suspect]
     Active Substance: DIPHENHYDRAMINE
     Indication: ANAPHYLACTIC REACTION
     Dosage: UNK
     Route: 048
  4. FLUTICASONE. [Suspect]
     Active Substance: FLUTICASONE
     Dosage: UNK
     Route: 055
  5. CETIRIZINE [Suspect]
     Active Substance: CETIRIZINE HYDROCHLORIDE
     Indication: ANAPHYLACTIC REACTION
     Route: 065
  6. HYDROXYZINE [Suspect]
     Active Substance: HYDROXYZINE HYDROCHLORIDE
     Indication: ANAPHYLACTIC REACTION
     Route: 065

REACTIONS (1)
  - Drug ineffective [Unknown]
